FAERS Safety Report 22958569 (Version 2)
Quarter: 2024Q2

REPORT INFORMATION
  Report Type: Report from Study
  Country: CA (occurrence: CA)
  Receive Date: 20230919
  Receipt Date: 20240617
  Transmission Date: 20240715
  Serious: Yes (Other)
  Sender: FDA-Public Use
  Company Number: CA-SANDOZ-SDZ2023CA029376

PATIENT
  Sex: Female

DRUGS (2)
  1. HYRIMOZ [Suspect]
     Active Substance: ADALIMUMAB-ADAZ
     Dosage: 80 MG, QW
     Route: 058
  2. HYRIMOZ [Suspect]
     Active Substance: ADALIMUMAB-ADAZ
     Indication: Crohn^s disease
     Dosage: FORMULATION (PRE-FILLED PEN)
     Route: 058
     Dates: start: 20230626

REACTIONS (5)
  - Crohn^s disease [Unknown]
  - Malaise [Unknown]
  - Arthralgia [Unknown]
  - Off label use [Unknown]
  - Product use issue [Unknown]
